FAERS Safety Report 5413150-8 (Version None)
Quarter: 2007Q3

REPORT INFORMATION
  Report Type: 
  Country: None (occurrence: None)
  Receive Date: 20070810
  Receipt Date: 20070804
  Transmission Date: 20080115
  Serious: Yes (Other)
  Sender: FDA-Public Use
  Company Number: 2007SP015862

PATIENT
  Age: 39 Year
  Sex: Female

DRUGS (5)
  1. PEG-INTRON [Suspect]
     Indication: HEPATITIS C
     Dosage: SC
     Route: 058
     Dates: start: 20070515
  2. RIBAVIRIN [Suspect]
     Indication: HEPATITIS C
     Dosage: PO
     Route: 048
     Dates: start: 20070515
  3. PAXIL [Concomitant]
  4. AMBIEN [Concomitant]
  5. BENADRYL [Concomitant]

REACTIONS (6)
  - ANGER [None]
  - ASTHENIA [None]
  - FAECES DISCOLOURED [None]
  - FATIGUE [None]
  - HAEMATEMESIS [None]
  - INSOMNIA [None]
